FAERS Safety Report 8377633-3 (Version None)
Quarter: 2012Q2

REPORT INFORMATION
  Report Type: 
  Country: None (occurrence: None)
  Receive Date: 20120522
  Receipt Date: 20120516
  Transmission Date: 20120825
  Serious: Yes (Hospitalization, Other)
  Sender: FDA-Public Use
  Company Number: US-BAYER-2011-082030

PATIENT
  Age: 23 Year
  Sex: Female
  Weight: 47.619 kg

DRUGS (4)
  1. PROMETHAZINE [Concomitant]
     Dosage: UNK UNK, QD
     Route: 048
     Dates: start: 20080808, end: 20080824
  2. YAZ [Suspect]
     Indication: CONTRACEPTION
     Dosage: UNK
     Route: 048
     Dates: start: 20080410, end: 20081112
  3. HYDROCODONE BITARTRATE AND ACETAMINOPHEN [Concomitant]
     Indication: PAIN
     Dosage: 5 MG, 1 Q6 HRS
     Dates: start: 20080131, end: 20080909
  4. HYDROCODONE BITARTRATE AND ACETAMINOPHEN [Concomitant]
     Dosage: 500 MG, 1 Q6 HRS

REACTIONS (5)
  - GALLBLADDER DISORDER [None]
  - CHOLECYSTITIS CHRONIC [None]
  - BILIARY DYSKINESIA [None]
  - EMOTIONAL DISTRESS [None]
  - PAIN [None]
